FAERS Safety Report 11993149 (Version 1)
Quarter: 2016Q1

REPORT INFORMATION
  Report Type: Spontaneous
  Country: US (occurrence: US)
  Receive Date: 20160203
  Receipt Date: 20160203
  Transmission Date: 20160526
  Serious: No
  Sender: FDA-Public Use
  Company Number: US-009507513-1602USA000365

PATIENT
  Age: 43 Year
  Sex: Female

DRUGS (2)
  1. ZOCOR [Concomitant]
     Active Substance: SIMVASTATIN
     Dosage: UNK
  2. JANUVIA [Suspect]
     Active Substance: SITAGLIPTIN PHOSPHATE
     Indication: DIABETES MELLITUS
     Dosage: UNK
     Route: 048
     Dates: start: 201507

REACTIONS (13)
  - Peripheral swelling [Unknown]
  - Mobility decreased [Unknown]
  - Headache [Unknown]
  - Influenza like illness [Unknown]
  - Limb injury [Unknown]
  - Myalgia [Unknown]
  - Swelling face [Recovered/Resolved]
  - Head discomfort [Unknown]
  - Arthralgia [Unknown]
  - Gingival swelling [Unknown]
  - Spinal pain [Unknown]
  - Mouth swelling [Unknown]
  - Swelling face [Unknown]

NARRATIVE: CASE EVENT DATE: 201510
